FAERS Safety Report 16074301 (Version 1)
Quarter: 2019Q1

REPORT INFORMATION
  Report Type: Spontaneous
  Country: US (occurrence: US)
  Receive Date: 20190314
  Receipt Date: 20190314
  Transmission Date: 20190418
  Serious: Yes (Other)
  Sender: FDA-Public Use
  Company Number: US-BAUSCH-BL-2019-007558

PATIENT
  Sex: Female

DRUGS (4)
  1. IPRATROPIUM BROMIDE NASAL SOLUTION 0.06% [Suspect]
     Active Substance: IPRATROPIUM BROMIDE
     Indication: COUGH
     Route: 045
     Dates: start: 2019, end: 20190306
  2. ALBUTEROL SULFATE INHALATION SOLUTION 0.083% [Suspect]
     Active Substance: ALBUTEROL SULFATE
     Indication: NASOPHARYNGITIS
     Dosage: INHALER
     Route: 065
     Dates: start: 20190220, end: 2019
  3. IPRATROPIUM BROMIDE NASAL SOLUTION 0.06% [Suspect]
     Active Substance: IPRATROPIUM BROMIDE
     Indication: NASOPHARYNGITIS
     Route: 045
     Dates: start: 20190220, end: 2019
  4. ALBUTEROL SULFATE INHALATION SOLUTION 0.083% [Suspect]
     Active Substance: ALBUTEROL SULFATE
     Indication: COUGH

REACTIONS (3)
  - Lung infection [Recovering/Resolving]
  - Ageusia [Not Recovered/Not Resolved]
  - Anosmia [Not Recovered/Not Resolved]

NARRATIVE: CASE EVENT DATE: 201902
